FAERS Safety Report 17984256 (Version 1)
Quarter: 2020Q3

REPORT INFORMATION
  Report Type: Spontaneous
  Country: US (occurrence: US)
  Receive Date: 20200706
  Receipt Date: 20200706
  Transmission Date: 20201103
  Serious: Yes (Disabling, Other)
  Sender: FDA-Public Use
  Company Number: None

PATIENT
  Age: 46 Year
  Sex: Female
  Weight: 96.75 kg

DRUGS (2)
  1. ONABOTULINUMTOXINA [Suspect]
     Active Substance: ONABOTULINUMTOXINA
     Indication: MIGRAINE
     Dosage: ?          QUANTITY:150 UNITS;OTHER FREQUENCY:1;?
     Route: 030
     Dates: start: 20200227, end: 20200227
  2. OLLY MULTI VITAMIN [Concomitant]

REACTIONS (15)
  - Heart rate increased [None]
  - Anxiety [None]
  - Post procedural complication [None]
  - Dysphagia [None]
  - Muscular weakness [None]
  - Hypoaesthesia [None]
  - Insomnia [None]
  - Arthralgia [None]
  - Nausea [None]
  - Pain in jaw [None]
  - Tremor [None]
  - Vomiting [None]
  - Fatigue [None]
  - Pain [None]
  - Neck pain [None]

NARRATIVE: CASE EVENT DATE: 20200227
